FAERS Safety Report 13670922 (Version 1)
Quarter: 2017Q2

REPORT INFORMATION
  Report Type: Spontaneous
  Country: US (occurrence: US)
  Receive Date: 20170620
  Receipt Date: 20170620
  Transmission Date: 20170830
  Serious: No
  Sender: FDA-Public Use
  Company Number: US-ROCHE-716484

PATIENT
  Age: 51 Year
  Sex: Female
  Weight: 71.7 kg

DRUGS (3)
  1. LORAZEPAM. [Concomitant]
     Active Substance: LORAZEPAM
     Indication: ANXIETY
     Route: 065
  2. XELODA [Suspect]
     Active Substance: CAPECITABINE
     Indication: BREAST CANCER METASTATIC
     Route: 048
  3. FEMARA [Concomitant]
     Active Substance: LETROZOLE
     Indication: BREAST CANCER
     Route: 048

REACTIONS (2)
  - Fatigue [Recovered/Resolved]
  - Diarrhoea [Recovered/Resolved]

NARRATIVE: CASE EVENT DATE: 201006
